FAERS Safety Report 5506401-2 (Version None)
Quarter: 2007Q4

REPORT INFORMATION
  Report Type: 
  Country: None (occurrence: None)
  Receive Date: 20071101
  Receipt Date: 20071101
  Transmission Date: 20080405
  Serious: Yes (Death)
  Sender: FDA-Public Use
  Company Number: None

PATIENT
  Age: 70 Year
  Sex: Female
  Weight: 74.8435 kg

DRUGS (1)
  1. AMIODARONE HCL [Suspect]
     Indication: ARRHYTHMIA
     Dosage: 200 MG  3 X''S A DAY  PO
     Route: 048
     Dates: start: 20061127, end: 20070602

REACTIONS (5)
  - DRUG TOXICITY [None]
  - LIVER DISORDER [None]
  - LUNG DISORDER [None]
  - MALAISE [None]
  - THYROID DISORDER [None]
